FAERS Safety Report 8003638-8 (Version None)
Quarter: 2011Q4

REPORT INFORMATION
  Report Type: 
  Country: None (occurrence: None)
  Receive Date: 20111222
  Receipt Date: 20111213
  Transmission Date: 20120403
  Serious: Yes (Hospitalization, Other)
  Sender: FDA-Public Use
  Company Number: US-ACTELION-A-US2011-48349

PATIENT

DRUGS (2)
  1. TADALAFIL [Concomitant]
  2. TRACLEER [Suspect]
     Indication: PULMONARY ARTERIAL HYPERTENSION
     Dosage: UNK
     Route: 048
     Dates: start: 20080730

REACTIONS (8)
  - HYPOVOLAEMIA [None]
  - GASTROENTERITIS [None]
  - HYPONATRAEMIA [None]
  - DIZZINESS [None]
  - MYALGIA [None]
  - AMMONIA INCREASED [None]
  - DYSPNOEA [None]
  - BLOOD POTASSIUM DECREASED [None]
